FAERS Safety Report 6284386-1 (Version None)
Quarter: 2009Q3

REPORT INFORMATION
  Report Type: 
  Country: None (occurrence: None)
  Receive Date: 20090727
  Receipt Date: 20090717
  Transmission Date: 20100115
  Serious: Yes (Other)
  Sender: FDA-Public Use
  Company Number: US-ROCHE-635580

PATIENT
  Sex: Male

DRUGS (2)
  1. TAMIFLU [Suspect]
     Indication: INFLUENZA
     Dosage: RECEIVED FOR A DAY AND HALF, DOSE: 60 MG = 1 TSP D4 X 5D
     Route: 065
     Dates: start: 20090526, end: 20090527
  2. TAMIFLU [Suspect]
     Route: 065

REACTIONS (5)
  - DIARRHOEA [None]
  - HALLUCINATION [None]
  - PYREXIA [None]
  - UNEVALUABLE EVENT [None]
  - VOMITING [None]
